FAERS Safety Report 6975404-3 (Version None)
Quarter: 2010Q3

REPORT INFORMATION
  Report Type: 
  Country: None (occurrence: None)
  Receive Date: 20100910
  Receipt Date: 20090306
  Transmission Date: 20110219
  Serious: No
  Sender: FDA-Public Use
  Company Number: US-WYE-H08501609

PATIENT
  Sex: Male

DRUGS (3)
  1. PRISTIQ [Suspect]
     Indication: MAJOR DEPRESSION
     Route: 048
     Dates: start: 20090302
  2. METFORMIN [Concomitant]
  3. BYETTA [Concomitant]

REACTIONS (2)
  - DIARRHOEA [None]
  - EJACULATION DISORDER [None]
